FAERS Safety Report 7563795-4 (Version None)
Quarter: 2011Q2

REPORT INFORMATION
  Report Type: 
  Country: None (occurrence: None)
  Receive Date: 20110615
  Receipt Date: 20110531
  Transmission Date: 20111010
  Serious: Yes (Life-Threatening, Hospitalization, Other)
  Sender: FDA-Public Use
  Company Number: AUR-APL-2011-02439

PATIENT
  Age: 56 Year
  Sex: Female

DRUGS (6)
  1. METFORMIN HCL [Suspect]
     Dosage: 1000MG-TID-ORAL
     Route: 048
     Dates: end: 20110423
  2. TRIATEC (RAMIPRIL) 10MG TABLET [Suspect]
     Dosage: 10MG-DAILY-ORAL
     Route: 048
     Dates: end: 20110423
  3. EZETROL (EZETIMIBE)10MG [Suspect]
     Dosage: 10MG-DAILY-ORAL
     Route: 048
     Dates: end: 20110423
  4. LYRICA [Suspect]
     Indication: PAIN IN EXTREMITY
     Dosage: 200MG-BID-ORAL
     Route: 048
     Dates: end: 20110423
  5. COAPROVE (HYDROCHLOROTHIZIDE/IBESARTAN) 300MG/12.5MG TABLET [Suspect]
     Dosage: 1DF-DAILY-ORAL
     Route: 048
     Dates: end: 20110423
  6. CRESTOR [Suspect]
     Dosage: 20 MG-BID-ORAL
     Route: 048
     Dates: end: 20110423

REACTIONS (4)
  - RENAL FAILURE ACUTE [None]
  - RHABDOMYOLYSIS [None]
  - ACIDOSIS [None]
  - DRUG INTERACTION [None]
